FAERS Safety Report 5597493-3 (Version None)
Quarter: 2008Q1

REPORT INFORMATION
  Report Type: 
  Country: None (occurrence: None)
  Receive Date: 20080121
  Receipt Date: 20080114
  Transmission Date: 20080703
  Serious: Yes (Death, Hospitalization)
  Sender: FDA-Public Use
  Company Number: PHHO2007TR15340

PATIENT
  Age: 40 Year
  Sex: Male
  Weight: 55 kg

DRUGS (1)
  1. AMN107 [Suspect]
     Dosage: 400 MG, BID
     Route: 048
     Dates: start: 20070727, end: 20070815

REACTIONS (9)
  - CARDIAC ARREST [None]
  - DIARRHOEA [None]
  - ESCHERICHIA INFECTION [None]
  - KLEBSIELLA INFECTION [None]
  - MALIGNANT NEOPLASM PROGRESSION [None]
  - METASTASES TO LIVER [None]
  - PYREXIA [None]
  - SALMONELLOSIS [None]
  - STAPHYLOCOCCAL INFECTION [None]
